FAERS Safety Report 9379953 (Version 1)
Quarter: 2013Q3

REPORT INFORMATION
  Report Type: Spontaneous
  Country: US (occurrence: US)
  Receive Date: 20130702
  Receipt Date: 20130702
  Transmission Date: 20140515
  Serious: Yes (Death, Other)
  Sender: FDA-Public Use
  Company Number: US-PFIZER INC-2013187473

PATIENT
  Age: 31 Year
  Sex: Male

DRUGS (1)
  1. DEXTROMETHORPHAN HBR [Suspect]
     Indication: SUBSTANCE USE
     Dosage: 600-900 MG, UNK

REACTIONS (5)
  - Toxicity to various agents [Fatal]
  - Completed suicide [Fatal]
  - Drug abuse [Unknown]
  - Agitation [Unknown]
  - Physical assault [Unknown]
